FAERS Safety Report 4803950-7 (Version None)
Quarter: 2005Q3

REPORT INFORMATION
  Report Type: 
  Country: None (occurrence: None)
  Receive Date: 20050920
  Receipt Date: 20050629
  Transmission Date: 20060218
  Serious: No
  Sender: FDA-Public Use
  Company Number: US-YAMANOUCHI-YPA20050319

PATIENT
  Sex: Female

DRUGS (4)
  1. VESICARE [Suspect]
     Indication: HYPERTONIC BLADDER
     Dosage: 10 MG PO
     Route: 048
     Dates: start: 20050627, end: 20050628
  2. RIBES [Concomitant]
  3. PAROXETINE HCL [Concomitant]
  4. BACLOSEN [Concomitant]

REACTIONS (2)
  - ABDOMINAL PAIN UPPER [None]
  - HOT FLUSH [None]
